FAERS Safety Report 18610626 (Version 1)
Quarter: 2020Q4

REPORT INFORMATION
  Report Type: Spontaneous
  Country: US (occurrence: US)
  Receive Date: 20201211
  Receipt Date: 20201211
  Transmission Date: 20210114
  Serious: Yes (Hospitalization)
  Sender: FDA-Public Use
  Company Number: None

PATIENT
  Age: 69 Year
  Sex: Female
  Weight: 108.45 kg

DRUGS (2)
  1. RITUXAN [Suspect]
     Active Substance: RITUXIMAB
     Indication: ARTERITIS
     Dosage: ?          OTHER FREQUENCY:WEEKLY X 4 DOSES;?
     Route: 041
     Dates: start: 20201211, end: 20201211
  2. RITUXAN [Suspect]
     Active Substance: RITUXIMAB
     Dosage: ?          OTHER FREQUENCY:WEEKLY X 4 DOSES;?
     Route: 041
     Dates: start: 20201211, end: 20201211

REACTIONS (5)
  - Anxiety [None]
  - Dyspnoea [None]
  - Chest discomfort [None]
  - Tachypnoea [None]
  - Infusion related reaction [None]

NARRATIVE: CASE EVENT DATE: 20201211
